FAERS Safety Report 6121626-3 (Version None)
Quarter: 2009Q1

REPORT INFORMATION
  Report Type: 
  Country: None (occurrence: None)
  Receive Date: 20090313
  Receipt Date: 20090304
  Transmission Date: 20090719
  Serious: Yes (Hospitalization)
  Sender: FDA-Public Use
  Company Number: US025182

PATIENT
  Age: 54 Year
  Sex: Female

DRUGS (3)
  1. PROVIGIL [Suspect]
     Dosage: 100 MG QD ORAL
     Route: 048
     Dates: start: 20070430, end: 20070513
  2. TYSABRI [Concomitant]
  3. AVONEX /00596803/ [Concomitant]

REACTIONS (3)
  - CARDIAC ARREST [None]
  - MYOCARDIAL INFARCTION [None]
  - STRESS CARDIOMYOPATHY [None]
